FAERS Safety Report 7482060-7 (Version None)
Quarter: 2011Q2

REPORT INFORMATION
  Report Type: 
  Country: None (occurrence: None)
  Receive Date: 20110516
  Receipt Date: 20110510
  Transmission Date: 20111010
  Serious: Yes (Hospitalization)
  Sender: FDA-Public Use
  Company Number: US-SHIRE-SPV1-2011-00470

PATIENT
  Sex: Female
  Weight: 75.737 kg

DRUGS (6)
  1. COUMADIN [Concomitant]
     Indication: ANTICOAGULANT THERAPY
     Dosage: 3 MG, 1X/DAY:QD
     Route: 048
  2. LIALDA [Suspect]
     Indication: CROHN'S DISEASE
     Dosage: 1.2 G, 4X/DAY:QID
     Route: 048
     Dates: start: 20090101
  3. ZOCOR [Concomitant]
     Indication: BLOOD CHOLESTEROL INCREASED
     Dosage: 40 MG, 1X/DAY:QD
     Route: 048
  4. AMIODARONE HCL [Concomitant]
     Indication: CARDIAC DISORDER
     Dosage: 200 MG, TWO TABLETS1X/DAY:QD
     Route: 048
  5. LEVOTHYROXINE SODIUM [Concomitant]
     Indication: THYROID DISORDER
     Dosage: 0.175 MG, 1X/DAY:QD
     Route: 048
  6. HUMIRA [Concomitant]
     Indication: CROHN'S DISEASE
     Dosage: 40 MG, 1X/WEEK
     Route: 058

REACTIONS (5)
  - DEHYDRATION [None]
  - CEREBROVASCULAR ACCIDENT [None]
  - SURGERY [None]
  - OFF LABEL USE [None]
  - ANAEMIA [None]
